FAERS Safety Report 18868962 (Version 1)
Quarter: 2021Q1

REPORT INFORMATION
  Report Type: Spontaneous
  Country: US (occurrence: US)
  Receive Date: 20210210
  Receipt Date: 20210210
  Transmission Date: 20210420
  Serious: No
  Sender: FDA-Public Use
  Company Number: US-SA-2021SA040713

PATIENT
  Age: 59 Year
  Sex: Male

DRUGS (1)
  1. DUPIXENT [Suspect]
     Active Substance: DUPILUMAB
     Dosage: FREQUECY GIVEN AS OTHER
     Route: 058
     Dates: start: 2020

REACTIONS (2)
  - Product dose omission issue [Unknown]
  - Asthma [Unknown]

NARRATIVE: CASE EVENT DATE: 20210125
